FAERS Safety Report 9386850 (Version 1)
Quarter: 2013Q3

REPORT INFORMATION
  Report Type: Spontaneous
  Country: US (occurrence: US)
  Receive Date: 20130708
  Receipt Date: 20130708
  Transmission Date: 20140515
  Serious: Yes (Other)
  Sender: FDA-Public Use
  Company Number: US-BAYER-2013-079477

PATIENT
  Age: 28 Year
  Sex: Female
  Weight: 95.24 kg

DRUGS (7)
  1. BETASERON [Suspect]
     Dosage: 0.3 MG, UNK
     Dates: start: 2005
  2. SOLU-MEDROL [Concomitant]
     Dosage: 125 MG, UNK
  3. ORTHO TRI-CYCLEN [Concomitant]
  4. RESTORIL [Concomitant]
     Dosage: 15 MG, UNK
  5. CYANOCOBALAMIN [Concomitant]
     Dosage: 1000 ?G, UNK
  6. VITAMIN D [Concomitant]
     Dosage: 1000 U, UNK
  7. COPAXONE [Concomitant]
     Dosage: 20MG/ML

REACTIONS (2)
  - Drug ineffective [Unknown]
  - Anti-interferon antibody positive [Unknown]
